FAERS Safety Report 9701611 (Version 2)
Quarter: 2013Q4

REPORT INFORMATION
  Report Type: Spontaneous
  Country: US (occurrence: US)
  Receive Date: 20131119
  Receipt Date: 20131119
  Transmission Date: 20140711
  Serious: Yes (Other)
  Sender: FDA-Public Use
  Company Number: US-ORACLE-2011S1000113

PATIENT
  Age: 52 Year
  Sex: Male
  Weight: 149.69 kg

DRUGS (10)
  1. KRYSTEXXA INJECTION [Suspect]
     Indication: GOUTY TOPHUS
     Route: 042
     Dates: start: 20111129, end: 20111129
  2. ULORIC [Concomitant]
     Indication: GOUT
  3. BENADRYL /00945501/ [Concomitant]
     Indication: PREMEDICATION
     Route: 048
     Dates: start: 20111129, end: 20111129
  4. SOLU-CORTEF [Concomitant]
     Indication: PREMEDICATION
     Route: 042
     Dates: start: 20111129, end: 20111129
  5. LISINOPRIL [Concomitant]
     Indication: PRODUCT USED FOR UNKNOWN INDICATION
  6. AMLODIPINE [Concomitant]
     Indication: OFF LABEL USE
  7. BABY ASPIRIN [Concomitant]
     Indication: OFF LABEL USE
  8. LANTUS [Concomitant]
     Indication: OFF LABEL USE
  9. NEXIUM /01479303/ [Concomitant]
     Indication: OFF LABEL USE
  10. VITAMIN D /00318501/ [Concomitant]
     Indication: OFF LABEL USE

REACTIONS (1)
  - Infusion related reaction [Recovered/Resolved]
